FAERS Safety Report 5377490-3 (Version None)
Quarter: 2007Q3

REPORT INFORMATION
  Report Type: 
  Country: None (occurrence: None)
  Receive Date: 20070703
  Receipt Date: 20070621
  Transmission Date: 20080115
  Serious: Yes (Disabling)
  Sender: FDA-Public Use
  Company Number: GB-ROCHE-499607

PATIENT
  Age: 67 Year
  Sex: Female
  Weight: 84 kg

DRUGS (7)
  1. XENICAL [Suspect]
     Indication: OBESITY
     Route: 048
     Dates: start: 20070201, end: 20070509
  2. ASPIRIN [Concomitant]
     Indication: HYPERTENSION
     Route: 048
     Dates: start: 20060825
  3. ADALAT CC [Concomitant]
     Indication: HYPERTENSION
     Route: 048
     Dates: start: 20011011
  4. CANDESARTAN [Concomitant]
     Indication: HYPERTENSION
     Route: 048
     Dates: start: 20020320
  5. ROSUVASTATIN [Concomitant]
     Indication: BLOOD CHOLESTEROL DECREASED
     Route: 048
     Dates: start: 20031112
  6. CARDURA [Concomitant]
     Indication: HYPERTENSION
     Route: 048
     Dates: start: 20020320
  7. BENDROFLUAZIDE [Concomitant]
     Indication: HYPERTENSION
     Route: 048
     Dates: start: 19981027

REACTIONS (1)
  - ARTHRALGIA [None]
